APPROVED DRUG PRODUCT: ERGOLOID MESYLATES
Active Ingredient: ERGOLOID MESYLATES
Strength: 0.5MG
Dosage Form/Route: TABLET;SUBLINGUAL
Application: A089233 | Product #001
Applicant: SUPERPHARM CORP
Approved: Sep 23, 1986 | RLD: No | RS: No | Type: DISCN